FAERS Safety Report 15884639 (Version 1)
Quarter: 2019Q1

REPORT INFORMATION
  Report Type: Spontaneous
  Country: US (occurrence: US)
  Receive Date: 20190107
  Receipt Date: 20190107
  Transmission Date: 20190417
  Serious: Yes (Hospitalization)
  Sender: FDA-Public Use
  Company Number: None

PATIENT
  Age: 43 Year
  Sex: Male

DRUGS (18)
  1. JANUVIA [Concomitant]
     Active Substance: SITAGLIPTIN PHOSPHATE
  2. HYDROCODONE BITARTRATE AND ACETAMINOPHEN [Concomitant]
     Active Substance: ACETAMINOPHEN\HYDROCODONE BITARTRATE
  3. NOVOLOG [Concomitant]
     Active Substance: INSULIN ASPART
  4. ALPRAZOLAM. [Concomitant]
     Active Substance: ALPRAZOLAM
  5. METHENAM [Concomitant]
  6. ATORVASTATIN [Concomitant]
     Active Substance: ATORVASTATIN
  7. CEPHALEXIN. [Concomitant]
     Active Substance: CEPHALEXIN
  8. TAMSULOSIN [Concomitant]
     Active Substance: TAMSULOSIN
  9. AMOX/CLAUV [Concomitant]
  10. VITAMIN D [Concomitant]
     Active Substance: CHOLECALCIFEROL
  11. SANCTURA [Concomitant]
     Active Substance: TROSPIUM CHLORIDE
  12. BACLOFEN. [Concomitant]
     Active Substance: BACLOFEN
  13. AMLODIPINE [Concomitant]
     Active Substance: AMLODIPINE BESYLATE
  14. GLIMEPIRIDE. [Concomitant]
     Active Substance: GLIMEPIRIDE
  15. ACYCLOVIR. [Concomitant]
     Active Substance: ACYCLOVIR
  16. DALFAMPRIDINE 10MG ER TABS [Suspect]
     Active Substance: DALFAMPRIDINE
     Indication: MULTIPLE SCLEROSIS
     Route: 048
     Dates: start: 20170708
  17. TRESIBA [Concomitant]
     Active Substance: INSULIN DEGLUDEC
  18. FAMOTIDINE. [Concomitant]
     Active Substance: FAMOTIDINE

REACTIONS (2)
  - Urinary tract infection [None]
  - Therapy cessation [None]
